FAERS Safety Report 9394546 (Version 1)
Quarter: 2013Q3

REPORT INFORMATION
  Report Type: Spontaneous
  Country: VE (occurrence: VE)
  Receive Date: 20130711
  Receipt Date: 20130711
  Transmission Date: 20140515
  Serious: Yes (Life-Threatening, Hospitalization, Other)
  Sender: FDA-Public Use
  Company Number: PHHY2013VE072898

PATIENT
  Age: 65 Year
  Sex: Male

DRUGS (1)
  1. FORADIL [Suspect]
     Indication: ASTHMA
     Dosage: 12 UG, BID

REACTIONS (4)
  - Feeling abnormal [Not Recovered/Not Resolved]
  - Increased upper airway secretion [Not Recovered/Not Resolved]
  - Drowning [Not Recovered/Not Resolved]
  - Sense of oppression [Not Recovered/Not Resolved]
